FAERS Safety Report 7771950-3 (Version None)
Quarter: 2011Q3

REPORT INFORMATION
  Report Type: 
  Country: None (occurrence: None)
  Receive Date: 20110922
  Receipt Date: 20100115
  Transmission Date: 20111222
  Serious: No
  Sender: FDA-Public Use
  Company Number: US-ASTRAZENECA-2009UW11779

PATIENT
  Age: 35 Year
  Sex: Female
  Weight: 102.5 kg

DRUGS (5)
  1. SEROQUEL [Suspect]
     Indication: SLEEP DISORDER
     Dosage: VARIOUS
     Route: 048
     Dates: start: 20050101, end: 20070101
  2. SEROQUEL [Suspect]
     Indication: BIPOLAR DISORDER
     Dosage: VARIOUS
     Route: 048
     Dates: start: 20050101, end: 20070101
  3. XANAX [Concomitant]
     Indication: PANIC DISORDER
     Route: 048
     Dates: start: 20070706
  4. LORTAB [Concomitant]
     Dosage: 5/500 MG, 500 MG TO 5 MG ,1 TAB Q4H, 5DAYS
     Route: 048
     Dates: start: 20070706
  5. AMBIEN [Concomitant]
     Route: 048
     Dates: start: 20070706

REACTIONS (3)
  - TYPE 2 DIABETES MELLITUS [None]
  - STAPHYLOCOCCAL INFECTION [None]
  - OBESITY [None]
